FAERS Safety Report 7470132-2 (Version None)
Quarter: 2011Q2

REPORT INFORMATION
  Report Type: 
  Country: None (occurrence: None)
  Receive Date: 20110510
  Receipt Date: 20110503
  Transmission Date: 20111010
  Serious: Yes (Death, Hospitalization)
  Sender: FDA-Public Use
  Company Number: A0925574A

PATIENT
  Age: 57 Year
  Sex: Male

DRUGS (2)
  1. ADVAIR DISKUS 100/50 [Suspect]
     Indication: CHRONIC OBSTRUCTIVE PULMONARY DISEASE
     Dosage: 1PUFF TWICE PER DAY
     Route: 055
     Dates: start: 20110426
  2. ALBUTEROL [Concomitant]

REACTIONS (5)
  - HEPATIC CIRRHOSIS [None]
  - HYPERAMMONAEMIA [None]
  - HEPATIC ENCEPHALOPATHY [None]
  - HEPATIC INFECTION [None]
  - PRODUCT QUALITY ISSUE [None]
